FAERS Safety Report 9795576 (Version 1)
Quarter: 2014Q1

REPORT INFORMATION
  Report Type: Spontaneous
  Country: US (occurrence: US)
  Receive Date: 20140103
  Receipt Date: 20140103
  Transmission Date: 20141002
  Serious: Yes (Other)
  Sender: FDA-Public Use
  Company Number: US-BAYER-2013-158583

PATIENT
  Sex: 0

DRUGS (1)
  1. VANQUISH [Suspect]
     Indication: SUICIDE ATTEMPT
     Dosage: 20-25 DF, ONCE
     Route: 048
     Dates: start: 20131224, end: 20131224

REACTIONS (2)
  - Suicide attempt [None]
  - Extra dose administered [None]
